FAERS Safety Report 4996560-2 (Version None)
Quarter: 2006Q2

REPORT INFORMATION
  Report Type: 
  Country: None (occurrence: None)
  Receive Date: 20060509
  Receipt Date: 20060418
  Transmission Date: 20061013
  Serious: Yes (Hospitalization)
  Sender: FDA-Public Use
  Company Number: US-AMGEN-US176917

PATIENT
  Sex: Female
  Weight: 80.5 kg

DRUGS (14)
  1. NEULASTA [Suspect]
     Indication: CHEMOTHERAPY
     Route: 058
     Dates: start: 20051011, end: 20060407
  2. GEMZAR [Concomitant]
     Route: 042
     Dates: start: 20060309, end: 20060406
  3. TAXOTERE [Concomitant]
     Route: 042
     Dates: start: 20060309, end: 20060406
  4. OXYCODONE [Concomitant]
     Dates: start: 20050616
  5. PREVACID [Concomitant]
     Dates: start: 20051020
  6. STOOL SOFTENER [Concomitant]
  7. OXYCONTIN [Concomitant]
  8. AMBIEN [Concomitant]
  9. PROMETHAZINE [Concomitant]
  10. BENADRYL [Concomitant]
     Route: 042
     Dates: start: 20060309, end: 20060406
  11. DECADRON [Concomitant]
     Route: 042
     Dates: start: 20060309, end: 20060406
  12. KYTRIL [Concomitant]
     Route: 042
     Dates: start: 20060309, end: 20060406
  13. ZANTAC [Concomitant]
     Route: 042
     Dates: start: 20060309, end: 20060406
  14. PROCRIT [Concomitant]
     Dates: start: 20051013, end: 20060407

REACTIONS (4)
  - DACTYLITIS [None]
  - FEBRILE NEUTROPENIA [None]
  - RAYNAUD'S PHENOMENON [None]
  - SEPSIS [None]
